FAERS Safety Report 19881426 (Version 2)
Quarter: 2022Q1

REPORT INFORMATION
  Report Type: Spontaneous
  Country: BE (occurrence: BE)
  Receive Date: 20210924
  Receipt Date: 20220113
  Transmission Date: 20220424
  Serious: Yes (Life-Threatening, Hospitalization, Other)
  Sender: FDA-Public Use
  Company Number: BE-CHEPLA-C20212309

PATIENT
  Age: 49 Year
  Sex: Male

DRUGS (35)
  1. ETOPOSIDE [Suspect]
     Active Substance: ETOPOSIDE
     Indication: Non-Hodgkin^s lymphoma
     Dosage: UNK, BASELINE BEACOPP REGIMEN
     Route: 065
  2. ETOPOSIDE [Suspect]
     Active Substance: ETOPOSIDE
     Indication: Chemotherapy
     Dosage: UNK, ESCALATED BEACOPP REGIMEN (4 CYCLES)
     Route: 065
     Dates: start: 2006, end: 200604
  3. ETOPOSIDE [Suspect]
     Active Substance: ETOPOSIDE
     Indication: Hodgkin^s disease nodular sclerosis stage IV
     Dosage: UNK
     Dates: start: 200602
  4. ETOPOSIDE [Suspect]
     Active Substance: ETOPOSIDE
     Dosage: UNK, CYCLE, FOUR CYCLES OF ESCALATED BEACOPP REGIMEN
     Route: 065
     Dates: start: 200602, end: 200604
  5. ETOPOSIDE [Suspect]
     Active Substance: ETOPOSIDE
     Dosage: UNK, BASELINE BEACOPP PATTERN
     Dates: start: 2006
  6. BLEOMYCIN [Suspect]
     Active Substance: BLEOMYCIN SULFATE
     Indication: Hodgkin^s disease
     Dosage: UNK, BASELINE BEACOPP REGIMEN
  7. BLEOMYCIN [Suspect]
     Active Substance: BLEOMYCIN SULFATE
     Indication: Chemotherapy
     Dosage: UNK, ESCALATED BEACOPP REGIMEN (4 CYCLES)
     Dates: start: 2006, end: 200604
  8. BLEOMYCIN [Suspect]
     Active Substance: BLEOMYCIN SULFATE
     Indication: Hodgkin^s disease nodular sclerosis stage IV
     Dosage: UNK
     Dates: start: 200602
  9. BLEOMYCIN [Suspect]
     Active Substance: BLEOMYCIN SULFATE
     Dosage: UNK, BASELINE BEACOPP PATTERN
     Dates: start: 2006
  10. BLEOMYCIN [Suspect]
     Active Substance: BLEOMYCIN SULFATE
     Dosage: UNK, CYCLE, FOUR CYCLES OF ESCALATED BEACOPP REGIMEN
     Route: 065
     Dates: start: 200602, end: 200604
  11. PROCARBAZINE [Suspect]
     Active Substance: PROCARBAZINE
     Indication: Hodgkin^s disease
     Dosage: UNK, ESCALATED BEACOPP REGIMEN (4 CYCLES)
     Dates: start: 2006, end: 200604
  12. PROCARBAZINE [Suspect]
     Active Substance: PROCARBAZINE
     Indication: Chemotherapy
     Dosage: UNK, BASELINE BEACOPP REGIMEN
  13. PROCARBAZINE [Suspect]
     Active Substance: PROCARBAZINE
     Indication: Hodgkin^s disease nodular sclerosis stage IV
     Dosage: UNK
     Dates: start: 200602
  14. PROCARBAZINE [Suspect]
     Active Substance: PROCARBAZINE
     Dosage: UNK, CYCLE, FOUR CYCLES OF ESCALATED BEACOPP REGIMEN
     Route: 065
     Dates: start: 200602, end: 200604
  15. PROCARBAZINE [Suspect]
     Active Substance: PROCARBAZINE
     Dosage: UNK, BASELINE BEACOPP PATTERN
     Dates: start: 2006
  16. ONCOVIN [Suspect]
     Active Substance: VINCRISTINE SULFATE
     Indication: Hodgkin^s disease
     Dosage: UNK, BASELINE BEACOPP REGIMEN
  17. ONCOVIN [Suspect]
     Active Substance: VINCRISTINE SULFATE
     Indication: Chemotherapy
     Dosage: UNK, ESCALATED BEACOPP REGIMEN (4 CYCLES)
     Dates: start: 2006, end: 200604
  18. ONCOVIN [Suspect]
     Active Substance: VINCRISTINE SULFATE
     Dosage: UNK
     Dates: start: 200602
  19. ONCOVIN [Suspect]
     Active Substance: VINCRISTINE SULFATE
     Dosage: UNK, CYCLE, FOUR CYCLES OF ESCALATED BEACOPP REGIMEN
     Route: 065
     Dates: start: 200602, end: 200604
  20. CYCLOPHOSPHAMIDE [Suspect]
     Active Substance: CYCLOPHOSPHAMIDE
     Indication: Hodgkin^s disease
     Dosage: UNK, ESCALATED BEACOPP REGIMEN (4 CYCLES)
     Dates: start: 2006, end: 200604
  21. CYCLOPHOSPHAMIDE [Suspect]
     Active Substance: CYCLOPHOSPHAMIDE
     Indication: Chemotherapy
     Dosage: UNK, BASELINE BEACOPP REGIMEN
     Dates: start: 2006
  22. CYCLOPHOSPHAMIDE [Suspect]
     Active Substance: CYCLOPHOSPHAMIDE
     Indication: Hodgkin^s disease nodular sclerosis stage IV
     Dosage: UNK
     Dates: start: 200602
  23. CYCLOPHOSPHAMIDE [Suspect]
     Active Substance: CYCLOPHOSPHAMIDE
     Dosage: UNK, FOUR CYCLES OF ESCALATED BEACOPP REGIMEN
     Route: 065
     Dates: start: 200602, end: 200604
  24. PREDNISONE [Suspect]
     Active Substance: PREDNISONE
     Indication: Hodgkin^s disease
     Dosage: UNK, ESCALATED BEACOPP REGIMEN (4 CYCLES)
     Dates: start: 2006, end: 200604
  25. PREDNISONE [Suspect]
     Active Substance: PREDNISONE
     Indication: Chemotherapy
     Dosage: UNK, BASELINE BEACOPP REGIMEN
  26. PREDNISONE [Suspect]
     Active Substance: PREDNISONE
     Dosage: UNK
     Dates: start: 200602
  27. PREDNISONE [Suspect]
     Active Substance: PREDNISONE
     Dosage: UNK, CYCLE, FOUR CYCLES OF ESCALATED BEACOPP REGIMEN
     Route: 065
     Dates: start: 200602, end: 200604
  28. ADRIAMYCIN [Suspect]
     Active Substance: DOXORUBICIN HYDROCHLORIDE
     Indication: Hodgkin^s disease
     Dosage: UNK, ESCALATED BEACOPP REGIMEN (4 CYCLES)
     Dates: start: 2006, end: 200604
  29. ADRIAMYCIN [Suspect]
     Active Substance: DOXORUBICIN HYDROCHLORIDE
     Indication: Chemotherapy
     Dosage: UNK, BASELINE BEACOPP REGIMEN
     Dates: start: 2006
  30. ADRIAMYCIN [Suspect]
     Active Substance: DOXORUBICIN HYDROCHLORIDE
     Indication: Hodgkin^s disease nodular sclerosis stage IV
     Dosage: UNK
     Dates: start: 200602
  31. ADRIAMYCIN [Suspect]
     Active Substance: DOXORUBICIN HYDROCHLORIDE
     Dosage: UNK, CYCLE, FOUR CYCLES OF ESCALATED BEACOPP REGIMEN
     Route: 065
     Dates: start: 200602, end: 200604
  32. LAMIVUDINE [Suspect]
     Active Substance: LAMIVUDINE
     Indication: Hepatitis B reactivation
     Dosage: UNK
     Route: 065
  33. VINCRISTINE SULFATE [Suspect]
     Active Substance: VINCRISTINE SULFATE
     Indication: Hodgkin^s disease nodular sclerosis stage IV
     Dosage: UNK, ESCALATED BEACOPP REGIMEN
     Dates: start: 200602, end: 200604
  34. VINCRISTINE SULFATE [Suspect]
     Active Substance: VINCRISTINE SULFATE
     Dosage: UNK, BASELINE BEACOPP PATTERN
     Dates: start: 2006
  35. PREDNISONE [Suspect]
     Active Substance: PREDNISONE
     Indication: Hodgkin^s disease nodular sclerosis stage IV
     Dosage: UNK, BASELINE BEACOPP PATTERN
     Dates: start: 2006

REACTIONS (9)
  - Hepatic failure [Recovered/Resolved]
  - Hepatic encephalopathy [Recovered/Resolved]
  - Hepatitis B reactivation [Recovered/Resolved]
  - Drug ineffective [Unknown]
  - Hepatitis B [Unknown]
  - Jaundice [Recovered/Resolved]
  - Fatigue [Recovered/Resolved]
  - Generalised oedema [Recovered/Resolved]
  - Decreased appetite [Recovered/Resolved]

NARRATIVE: CASE EVENT DATE: 20060101
